FAERS Safety Report 23137923 (Version 1)
Quarter: 2023Q4

REPORT INFORMATION
  Report Type: Spontaneous
  Country: CA (occurrence: CA)
  Receive Date: 20231102
  Receipt Date: 20231102
  Transmission Date: 20240109
  Serious: Yes (Other)
  Sender: FDA-Public Use
  Company Number: CA-002147023-NVSC2023CA044305

PATIENT
  Age: 44 Year
  Sex: Female

DRUGS (1)
  1. LETROZOLE [Suspect]
     Active Substance: LETROZOLE
     Indication: Product used for unknown indication
     Dosage: UNK (2-5MG DAILY)
     Route: 048
     Dates: start: 20191111, end: 20230222

REACTIONS (1)
  - Disease progression [Not Recovered/Not Resolved]
